FAERS Safety Report 4353572-X (Version None)
Quarter: 2004Q2

REPORT INFORMATION
  Report Type: 
  Country: None (occurrence: None)
  Receive Date: 20040505
  Receipt Date: 20040413
  Transmission Date: 20050107
  Serious: Yes (Hospitalization)
  Sender: FDA-Public Use
  Company Number: JP-GLAXOSMITHKLINE-B0329979A

PATIENT
  Age: 83 Year
  Sex: Female
  Weight: 47 kg

DRUGS (9)
  1. ZOVIRAX [Suspect]
     Indication: HERPES ZOSTER
     Route: 042
     Dates: start: 20040404
  2. ZOVIRAX [Suspect]
     Route: 048
  3. SELBEX [Concomitant]
     Dosage: 250MG PER DAY
     Route: 048
  4. METHYCOBIDE [Concomitant]
     Dosage: 1500MG PER DAY
     Route: 048
  5. AMLODIPINE [Concomitant]
     Dosage: 10MG PER DAY
     Route: 048
  6. ALLOPURINOL TAB [Concomitant]
     Dosage: 50MG PER DAY
     Route: 048
  7. LASIX [Concomitant]
     Dosage: 20MG PER DAY
     Route: 048
  8. BLOPRESS [Concomitant]
     Dosage: 4MG PER DAY
     Route: 048
  9. HEMODIALYSIS [Concomitant]
     Dates: start: 20030301

REACTIONS (5)
  - DELIRIUM [None]
  - GAIT DISTURBANCE [None]
  - HALLUCINATION [None]
  - NERVOUS SYSTEM DISORDER [None]
  - RESTLESSNESS [None]
